FAERS Safety Report 16148855 (Version 1)
Quarter: 2019Q2

REPORT INFORMATION
  Report Type: Spontaneous
  Country: US (occurrence: US)
  Receive Date: 20190402
  Receipt Date: 20190402
  Transmission Date: 20190711
  Serious: No
  Sender: FDA-Public Use
  Company Number: US-BAYER-2019-061191

PATIENT
  Age: 41 Year
  Sex: Female
  Weight: 59 kg

DRUGS (1)
  1. CLARITIN [Suspect]
     Active Substance: LORATADINE
     Dosage: 2.5 ML
     Route: 048
     Dates: start: 20190326, end: 20190326

REACTIONS (2)
  - Dysgeusia [Unknown]
  - Underdose [Unknown]

NARRATIVE: CASE EVENT DATE: 20190326
